FAERS Safety Report 12214022 (Version 1)
Quarter: 2016Q1

REPORT INFORMATION
  Report Type: Spontaneous
  Country: IT (occurrence: IT)
  Receive Date: 20160328
  Receipt Date: 20160328
  Transmission Date: 20160526
  Serious: Yes (Other)
  Sender: FDA-Public Use
  Company Number: IT-TEVA-645523ACC

PATIENT
  Age: 50 Year
  Sex: Male
  Weight: 84 kg

DRUGS (3)
  1. FLUOROURACILE TEVA - TEVA ITALIA S.R.L. [Suspect]
     Active Substance: FLUOROURACIL
     Indication: NASOPHARYNGEAL CANCER
     Dosage: 6000 MG CYCLICAL
     Route: 042
     Dates: start: 20150815, end: 20160210
  2. CISPLATINO TEVA - TEVA PHARMA B.V. [Suspect]
     Active Substance: CISPLATIN
     Indication: NASOPHARYNGEAL CANCER
     Dosage: 150 MG CYCLICAL
     Route: 042
     Dates: start: 20150815, end: 20160210
  3. TAXOTERE [Suspect]
     Active Substance: DOCETAXEL
     Indication: NASOPHARYNGEAL CANCER
     Dosage: 150 MG CYCLICAL
     Route: 042
     Dates: start: 20150815, end: 20160210

REACTIONS (5)
  - Anaemia [Recovering/Resolving]
  - Asthenia [Recovering/Resolving]
  - Leukopenia [Recovering/Resolving]
  - Thrombocytopenia [Recovering/Resolving]
  - Neutropenia [Recovering/Resolving]

NARRATIVE: CASE EVENT DATE: 20151123
